FAERS Safety Report 9067435 (Version 1)
Quarter: 2013Q1

REPORT INFORMATION
  Report Type: Spontaneous
  Country: ES (occurrence: ES)
  Receive Date: 20130214
  Receipt Date: 20130214
  Transmission Date: 20140127
  Serious: Yes (Hospitalization)
  Sender: FDA-Public Use
  Company Number: ES-ABBOTT-13P-144-1049539-00

PATIENT
  Age: 79 Year
  Sex: Female

DRUGS (5)
  1. DEPAKINE [Suspect]
     Indication: CONVULSION
     Dosage: UNKNOWN: DAILY
     Route: 048
     Dates: start: 20120621, end: 20120712
  2. CITALOPRAM [Interacting]
     Indication: PRODUCT USED FOR UNKNOWN INDICATION
     Dosage: UNKNOWN;DAILY
     Route: 048
     Dates: start: 2010, end: 20120712
  3. HYDROCHLOROTHIAZIDE [Interacting]
     Indication: HYPERTENSION
     Dosage: UNKNOWN;DAILY
     Route: 048
     Dates: start: 2011, end: 20120712
  4. LEVETIRACETAM [Concomitant]
     Indication: PRODUCT USED FOR UNKNOWN INDICATION
     Dates: start: 201206, end: 20120712
  5. PARAPRES [Concomitant]
     Indication: PRODUCT USED FOR UNKNOWN INDICATION
     Dates: start: 2010, end: 20120712

REACTIONS (2)
  - Inappropriate antidiuretic hormone secretion [Recovered/Resolved]
  - Drug interaction [Recovered/Resolved]
